FAERS Safety Report 7210388-4 (Version None)
Quarter: 2011Q1

REPORT INFORMATION
  Report Type: 
  Country: None (occurrence: None)
  Receive Date: 20110105
  Receipt Date: 20101224
  Transmission Date: 20110831
  Serious: Yes (Other)
  Sender: FDA-Public Use
  Company Number: PHHY2010US81640

PATIENT
  Sex: Female
  Weight: 120 kg

DRUGS (2)
  1. LYRICA [Concomitant]
  2. RECLAST [Suspect]
     Indication: OSTEOPOROSIS
     Dosage: 5 MG, UNK
     Dates: start: 20100901, end: 20100901

REACTIONS (6)
  - DRY SKIN [None]
  - SKIN INDURATION [None]
  - BURNING SENSATION [None]
  - PRURITUS GENERALISED [None]
  - SKIN EXFOLIATION [None]
  - QUALITY OF LIFE DECREASED [None]
